FAERS Safety Report 9670022 (Version 2)
Quarter: 2014Q2

REPORT INFORMATION
  Report Type: Spontaneous
  Country: ES (occurrence: SE)
  Receive Date: 20131105
  Receipt Date: 20140528
  Transmission Date: 20141212
  Serious: No
  Sender: FDA-Public Use
  Company Number: SE-FRI-1000050747

PATIENT
  Age: 69 Year
  Sex: Female

DRUGS (4)
  1. ACLIDINIUM [Suspect]
     Indication: CHRONIC OBSTRUCTIVE PULMONARY DISEASE
     Dosage: 644 MCG
     Route: 055
     Dates: start: 20130917, end: 20130922
  2. PULMICORT TURBUHALER [Concomitant]
  3. BRICANYL TURBUHALER [Concomitant]
  4. DERTRALIN [Concomitant]
     Dosage: 50 MG

REACTIONS (3)
  - Diarrhoea [Recovered/Resolved]
  - Pyrexia [Recovered/Resolved]
  - Headache [Recovered/Resolved]
